FAERS Safety Report 9902653 (Version 2)
Quarter: 2014Q2

REPORT INFORMATION
  Report Type: Spontaneous
  Country: US (occurrence: US)
  Receive Date: 20140217
  Receipt Date: 20140527
  Transmission Date: 20141212
  Serious: Yes (Other)
  Sender: FDA-Public Use
  Company Number: US-BAYER-2014-024853

PATIENT
  Age: 26 Year
  Sex: Female

DRUGS (2)
  1. MIRENA [Suspect]
     Dosage: 20 MCG/24HR, CONT
     Route: 015
     Dates: start: 20120731, end: 20121207
  2. SYNTHROID [Concomitant]
     Indication: HYPERTHYROIDISM
     Dosage: 75 ?G, UNK

REACTIONS (5)
  - Device failure [None]
  - Device dislocation [None]
  - Injury [None]
  - Emotional distress [None]
  - Pain [None]
